FAERS Safety Report 8176586-0 (Version None)
Quarter: 2012Q1

REPORT INFORMATION
  Report Type: 
  Country: None (occurrence: None)
  Receive Date: 20120301
  Receipt Date: 20120223
  Transmission Date: 20120608
  Serious: Yes (Hospitalization)
  Sender: FDA-Public Use
  Company Number: CA-JNJFOC-20120212487

PATIENT
  Sex: Male
  Weight: 84 kg

DRUGS (6)
  1. REMICADE [Suspect]
     Indication: COLITIS ULCERATIVE
     Dosage: ONCE IN 7 TO 8 WEEKS. PATIENT HAS HAD 13 INFUSIONS
     Route: 042
  2. REMICADE [Suspect]
     Indication: RHEUMATOID ARTHRITIS
     Dosage: ONCE IN 7 TO 8 WEEKS. PATIENT HAS HAD 13 INFUSIONS
     Route: 042
  3. IMURAN [Concomitant]
     Indication: PRODUCT USED FOR UNKNOWN INDICATION
     Route: 065
  4. NAPROSYN [Concomitant]
     Indication: PRODUCT USED FOR UNKNOWN INDICATION
     Route: 065
  5. ATIVAN [Concomitant]
     Indication: PRODUCT USED FOR UNKNOWN INDICATION
     Dosage: AS NECESSARY
     Route: 065
  6. ASACOL [Concomitant]
     Indication: PRODUCT USED FOR UNKNOWN INDICATION
     Route: 065

REACTIONS (2)
  - ROAD TRAFFIC ACCIDENT [None]
  - MUSCLE RUPTURE [None]
